FAERS Safety Report 15303824 (Version 1)
Quarter: 2018Q3

REPORT INFORMATION
  Report Type: Report from Study
  Country: US (occurrence: US)
  Receive Date: 20180821
  Receipt Date: 20180821
  Transmission Date: 20181010
  Serious: Yes (Hospitalization)
  Sender: FDA-Public Use
  Company Number: US-GILEAD-2018-0357790

PATIENT
  Age: 10 Year
  Sex: Male

DRUGS (7)
  1. AZTREONAM LYSINE [Suspect]
     Active Substance: AZTREONAM LYSINE
     Indication: CYSTIC FIBROSIS
     Dosage: 1 VIAL 3X/DAY, 28 DAYS ON, 28 DAYS OFF
     Route: 055
  2. BETHKIS [Suspect]
     Active Substance: TOBRAMYCIN
     Indication: CYSTIC FIBROSIS
     Dosage: USE 1 AMPULEBID FOR 28 DAYS AND THEN OFF FOR 28 DAYS
     Route: 065
     Dates: start: 20161005
  3. PREVACID [Concomitant]
     Active Substance: LANSOPRAZOLE
  4. ALBUTEROL                          /00139501/ [Suspect]
     Active Substance: ALBUTEROL
     Indication: CYSTIC FIBROSIS
     Dosage: NEBULIZE 1 VIAL BID AND EVEY 4 HOURS AS NEEDED
     Route: 055
     Dates: start: 20150403
  5. BOOST [Concomitant]
     Active Substance: DIETARY SUPPLEMENT
  6. AQUADEKS                           /07679501/ [Concomitant]
     Active Substance: MINERALS\VITAMINS
  7. PULMOZYME [Suspect]
     Active Substance: DORNASE ALFA
     Indication: CYSTIC FIBROSIS
     Dosage: INHALE 1 VIAL VIA NEBULIZER DAILY
     Route: 055
     Dates: start: 20150403

REACTIONS (1)
  - Cystic fibrosis respiratory infection suppression [Unknown]
